FAERS Safety Report 4588356-0 (Version None)
Quarter: 2005Q1

REPORT INFORMATION
  Report Type: 
  Country: None (occurrence: None)
  Receive Date: 20050216
  Receipt Date: 20050127
  Transmission Date: 20050727
  Serious: Yes (Other)
  Sender: FDA-Public Use
  Company Number: US_0502111735

PATIENT
  Age: 24 Year
  Sex: Female
  Weight: 52 kg

DRUGS (5)
  1. INSULIN [Suspect]
     Indication: DIABETES MELLITUS
     Dates: start: 19480101, end: 19480101
  2. HUMALOG [Suspect]
     Indication: DIABETES MELLITUS
     Dosage: 6 U DAY
     Dates: start: 20041101
  3. NOVOLIN N [Concomitant]
  4. LANTUS [Concomitant]
  5. NOVOLIN R [Concomitant]

REACTIONS (13)
  - ANAPHYLACTIC SHOCK [None]
  - BLOOD GLUCOSE DECREASED [None]
  - BLOOD GLUCOSE INCREASED [None]
  - COUGH [None]
  - INJECTION SITE ERYTHEMA [None]
  - INJECTION SITE SWELLING [None]
  - OEDEMA PERIPHERAL [None]
  - PAIN IN EXTREMITY [None]
  - PHARMACEUTICAL PRODUCT COMPLAINT [None]
  - PRURITUS [None]
  - RETINAL DETACHMENT [None]
  - SCRATCH [None]
  - WHEEZING [None]
